APPROVED DRUG PRODUCT: OXYMORPHONE HYDROCHLORIDE
Active Ingredient: OXYMORPHONE HYDROCHLORIDE
Strength: 5MG
Dosage Form/Route: TABLET;ORAL
Application: A202321 | Product #001
Applicant: SPECGX LLC
Approved: Apr 25, 2013 | RLD: No | RS: No | Type: DISCN